FAERS Safety Report 9120628 (Version 1)
Quarter: 2013Q1

REPORT INFORMATION
  Report Type: Spontaneous
  Country: IN (occurrence: IN)
  Receive Date: 20130226
  Receipt Date: 20130226
  Transmission Date: 20140127
  Serious: Yes (Hospitalization)
  Sender: FDA-Public Use
  Company Number: IN-MYLANLABS-2013S1003251

PATIENT
  Age: 13 Year
  Sex: Female

DRUGS (2)
  1. SODIUM VALPROATE [Suspect]
     Indication: CONVULSION
     Dosage: 1250MG/DAY IN TWO DIVIDED DOSES
     Route: 048
  2. PHENYTOIN [Concomitant]
     Indication: CONVULSION
     Dosage: 300MG/DAY
     Route: 048

REACTIONS (4)
  - Hyperammonaemia [Recovered/Resolved]
  - Hyperlactacidaemia [Recovered/Resolved]
  - Coma [Recovered/Resolved]
  - Altered state of consciousness [Recovered/Resolved]
